FAERS Safety Report 4906936-7 (Version None)
Quarter: 2006Q1

REPORT INFORMATION
  Report Type: 
  Country: None (occurrence: None)
  Receive Date: 20060207
  Receipt Date: 20060131
  Transmission Date: 20060701
  Serious: Yes (Hospitalization)
  Sender: FDA-Public Use
  Company Number: 2006-137872-NL

PATIENT
  Age: 62 Year
  Sex: Male

DRUGS (10)
  1. MIRTAZAPINE [Suspect]
     Indication: NEUROSIS
     Dosage: 30 MG ORAL
     Route: 048
     Dates: start: 20051006
  2. METOPROLOL SUCCINATE [Concomitant]
  3. DIGOXIN [Concomitant]
  4. PROPIOMAZINE MALEATE [Concomitant]
  5. WARFARIN SODIUM [Concomitant]
  6. FERROUS SULFATE TAB [Concomitant]
  7. FUROSEMIDE [Concomitant]
  8. SPIRONOLACTONE [Concomitant]
  9. CAPTOPRIL [Concomitant]
  10. ALLOPURINOL [Concomitant]

REACTIONS (5)
  - CARDIAC FAILURE [None]
  - CONDITION AGGRAVATED [None]
  - HYPOTENSION [None]
  - OEDEMA PERIPHERAL [None]
  - RENAL FAILURE [None]
